FAERS Safety Report 4309720-0 (Version None)
Quarter: 2004Q1

REPORT INFORMATION
  Report Type: 
  Country: None (occurrence: None)
  Receive Date: 20040301
  Receipt Date: 20040219
  Transmission Date: 20041129
  Serious: Yes (Disabling, Other)
  Sender: FDA-Public Use
  Company Number: JP-SHR-04-020951

PATIENT
  Age: 69 Year
  Sex: Male
  Weight: 70 kg

DRUGS (8)
  1. FERIDEX I.V. [Suspect]
     Indication: LIVER DISORDER
     Dosage: 3.5 M1, 1 DOSE, INTRAVENOUS
     Route: 042
     Dates: start: 20040126, end: 20040126
  2. FERIDEX I.V. [Suspect]
     Indication: NUCLEAR MAGNETIC RESONANCE IMAGING
     Dosage: 3.5 M1, 1 DOSE, INTRAVENOUS
     Route: 042
     Dates: start: 20040126, end: 20040126
  3. INTRON A [Concomitant]
  4. REBETOL [Concomitant]
  5. URSO [Concomitant]
  6. LANSOPRAZOLE [Concomitant]
  7. SUCRALFATE [Concomitant]
  8. DEXTROSE INFUSION FLUID [Concomitant]

REACTIONS (17)
  - BLOOD PRESSURE DIASTOLIC INCREASED [None]
  - BLOOD PRESSURE SYSTOLIC DECREASED [None]
  - CHEST PAIN [None]
  - CHILLS [None]
  - CYANOSIS [None]
  - DEAFNESS UNILATERAL [None]
  - DIZZINESS [None]
  - DYSPNOEA [None]
  - HEADACHE [None]
  - INNER EAR DISORDER [None]
  - NAUSEA [None]
  - PALPITATIONS [None]
  - PYREXIA [None]
  - RESPIRATORY DISTRESS [None]
  - SHOCK [None]
  - SUDDEN HEARING LOSS [None]
  - VOMITING [None]
